FAERS Safety Report 11684182 (Version 3)
Quarter: 2016Q1

REPORT INFORMATION
  Report Type: Report from Study
  Country: US (occurrence: US)
  Receive Date: 20151029
  Receipt Date: 20160121
  Transmission Date: 20160525
  Serious: No
  Sender: FDA-Public Use
  Company Number: PHEH2015US011174

PATIENT
  Age: 49 Year
  Sex: Female
  Weight: 43.84 kg

DRUGS (3)
  1. ZORVOLEX [Suspect]
     Active Substance: DICLOFENAC
     Indication: INFLAMMATION
     Dosage: UNK
     Route: 065
  2. GILENYA [Suspect]
     Active Substance: FINGOLIMOD HYDROCHLORIDE
     Indication: RELAPSING-REMITTING MULTIPLE SCLEROSIS
     Dosage: 0.5 MG, QD
     Route: 048
     Dates: start: 20150608
  3. TOPAMAX [Suspect]
     Active Substance: TOPIRAMATE
     Indication: MYOCARDIAL INFARCTION
     Dosage: UNK
     Route: 065

REACTIONS (22)
  - Malaise [Recovering/Resolving]
  - Nausea [Not Recovered/Not Resolved]
  - Sinusitis [Unknown]
  - Blood pressure decreased [Not Recovered/Not Resolved]
  - Paraesthesia [Unknown]
  - Sleep disorder [Unknown]
  - Pain [Unknown]
  - Chest discomfort [Unknown]
  - Gastroenteritis viral [Unknown]
  - Headache [Unknown]
  - Weight increased [Unknown]
  - Swelling [Unknown]
  - Ear infection [Unknown]
  - Immune system disorder [Unknown]
  - Blood immunoglobulin G decreased [Recovering/Resolving]
  - Middle insomnia [Unknown]
  - Fatigue [Unknown]
  - Vomiting [Unknown]
  - Energy increased [Recovering/Resolving]
  - Bronchitis [Unknown]
  - Hypoaesthesia [Unknown]
  - Viral infection [Recovering/Resolving]

NARRATIVE: CASE EVENT DATE: 20150609
